FAERS Safety Report 18698853 (Version 1)
Quarter: 2021Q1

REPORT INFORMATION
  Report Type: Report from Study
  Country: None (occurrence: GR)
  Receive Date: 20210105
  Receipt Date: 20210105
  Transmission Date: 20210419
  Serious: Yes (Death, Hospitalization)
  Sender: FDA-Public Use
  Company Number: GR-ABBVIE-21K-066-3715171-00

PATIENT
  Age: 77 Year
  Sex: Male

DRUGS (5)
  1. MACROGOL [Concomitant]
     Active Substance: POLYETHYLENE GLYCOLS
     Indication: CONSTIPATION
  2. OLARTAN [Concomitant]
     Active Substance: OLMESARTAN MEDOXOMIL
     Indication: HYPERTENSION
     Route: 048
  3. DUODOPA [Suspect]
     Active Substance: CARBIDOPA\LEVODOPA
     Indication: PARKINSON^S DISEASE
     Dosage: MORNING DOSE: 5.0 ML; CONTINUOUS RATE: 3.0 ML/H; EXTRA DOSE: 2.0 ML
     Route: 050
     Dates: start: 20190710
  4. DUODOPA [Suspect]
     Active Substance: CARBIDOPA\LEVODOPA
  5. SYMMETREL [Concomitant]
     Active Substance: AMANTADINE HYDROCHLORIDE
     Indication: HYPERKINESIA
     Dosage: (1 X 1) 1 ? 3 / DAY
     Route: 048
     Dates: start: 20191010

REACTIONS (2)
  - Cardiac arrest [Fatal]
  - Hospitalisation [Unknown]

NARRATIVE: CASE EVENT DATE: 20201214
